FAERS Safety Report 12485607 (Version 2)
Quarter: 2016Q4

REPORT INFORMATION
  Report Type: Report from Study
  Country: IT (occurrence: JP)
  Receive Date: 20160621
  Receipt Date: 20161102
  Transmission Date: 20170207
  Serious: Yes (Death, Life-Threatening, Hospitalization, Other)
  Sender: FDA-Public Use
  Company Number: IT-SIGMA-TAU US-2016STPI000453

PATIENT
  Age: 91 Year
  Sex: Female

DRUGS (15)
  1. CARNITOR [Concomitant]
     Active Substance: LEVOCARNITINE
     Indication: MUSCLE SPASMS
     Dosage: 300 MG, TID
     Route: 048
     Dates: end: 201505
  2. SODIUM BICARBONATE. [Concomitant]
     Active Substance: SODIUM BICARBONATE
     Indication: PRODUCT USED FOR UNKNOWN INDICATION
     Dosage: UNK
     Dates: end: 20150720
  3. MUCOSTA [Concomitant]
     Active Substance: REBAMIPIDE
     Indication: PRODUCT USED FOR UNKNOWN INDICATION
     Dosage: UNK
     Dates: end: 20150813
  4. VITAFANT [Concomitant]
     Dosage: UNK
     Dates: start: 20150707, end: 20160509
  5. GLUCOSE [Concomitant]
     Active Substance: DEXTROSE
     Dosage: UNK
     Dates: start: 20150803, end: 20160509
  6. CARNITOR [Concomitant]
     Active Substance: LEVOCARNITINE
     Dosage: UNK
  7. GASTER [Concomitant]
     Active Substance: FAMOTIDINE
     Indication: PRODUCT USED FOR UNKNOWN INDICATION
     Dosage: UNK
     Dates: start: 20151216, end: 20160509
  8. AMLODIN [Concomitant]
     Active Substance: AMLODIPINE BESYLATE
     Indication: PRODUCT USED FOR UNKNOWN INDICATION
     Dosage: UNK
     Dates: end: 20150813
  9. ROTIGOTINE [Concomitant]
     Active Substance: ROTIGOTINE
     Indication: PRODUCT USED FOR UNKNOWN INDICATION
     Dosage: UNK
     Dates: start: 20150821, end: 20160509
  10. FRANDOL [Concomitant]
     Active Substance: ISOSORBIDE DINITRATE
     Indication: PRODUCT USED FOR UNKNOWN INDICATION
  11. BAYASPIRIN [Concomitant]
     Active Substance: ASPIRIN
     Indication: PRODUCT USED FOR UNKNOWN INDICATION
     Dosage: UNK
     Dates: start: 20150707, end: 20160509
  12. ADALAT [Concomitant]
     Active Substance: NIFEDIPINE
     Indication: PRODUCT USED FOR UNKNOWN INDICATION
  13. COVERSYL                           /00790702/ [Concomitant]
     Active Substance: PERINDOPRIL
     Indication: PRODUCT USED FOR UNKNOWN INDICATION
     Dosage: UNK
     Dates: end: 20151006
  14. AZILVA [Concomitant]
     Active Substance: AZILSARTAN KAMEDOXOMIL
     Indication: PRODUCT USED FOR UNKNOWN INDICATION
     Dosage: UNK
     Dates: end: 20160126
  15. CARNITOR [Suspect]
     Active Substance: LEVOCARNITINE
     Indication: CARNITINE DEFICIENCY
     Dosage: 1000 MG, TIW
     Route: 010
     Dates: start: 20150527, end: 20160509

REACTIONS (6)
  - Fall [Unknown]
  - Fractured sacrum [Unknown]
  - Angina pectoris [Recovered/Resolved]
  - Thrombocytopenia [Not Recovered/Not Resolved]
  - Marasmus [Fatal]
  - Pancytopenia [Fatal]

NARRATIVE: CASE EVENT DATE: 20150202
